FAERS Safety Report 4434916-7 (Version None)
Quarter: 2004Q3

REPORT INFORMATION
  Report Type: 
  Country: None (occurrence: None)
  Receive Date: 20040726
  Receipt Date: 20040512
  Transmission Date: 20050211
  Serious: No
  Sender: FDA-Public Use
  Company Number: USA040567406

PATIENT
  Age: 57 Year
  Sex: Female

DRUGS (3)
  1. FORTEO [Suspect]
     Indication: OSTEOPOROSIS
     Dates: start: 20031001, end: 20040507
  2. CELEBREX [Concomitant]
  3. MULTIVITAMIN [Concomitant]

REACTIONS (3)
  - ARTHRITIS [None]
  - MIGRAINE [None]
  - SOMNOLENCE [None]
